FAERS Safety Report 16974113 (Version 1)
Quarter: 2019Q4

REPORT INFORMATION
  Report Type: Spontaneous
  Country: US (occurrence: US)
  Receive Date: 20191030
  Receipt Date: 20191030
  Transmission Date: 20200122
  Serious: Yes (Other)
  Sender: FDA-Public Use
  Company Number: US-MYLANLABS-2019M1101557

PATIENT
  Sex: Male

DRUGS (4)
  1. VALTREX [Concomitant]
     Active Substance: VALACYCLOVIR HYDROCHLORIDE
     Dosage: UNK
  2. ZYLOPRIM [Concomitant]
     Active Substance: ALLOPURINOL
  3. LEVOFLOXACIN. [Concomitant]
     Active Substance: LEVOFLOXACIN
  4. FULPHILA [Suspect]
     Active Substance: PEGFILGRASTIM-JMDB
     Indication: NEUTROPHIL COUNT INCREASED
     Dosage: UNK, BIWEEKLY, EVERY 14 DAYS
     Route: 058
     Dates: start: 20190819

REACTIONS (3)
  - Neutrophil count abnormal [Not Recovered/Not Resolved]
  - Drug ineffective [Not Recovered/Not Resolved]
  - Needle issue [Unknown]
